FAERS Safety Report 6076556-2 (Version None)
Quarter: 2009Q1

REPORT INFORMATION
  Report Type: 
  Country: None (occurrence: None)
  Receive Date: 20090213
  Receipt Date: 20090209
  Transmission Date: 20090719
  Serious: Yes (Hospitalization, Other)
  Sender: FDA-Public Use
  Company Number: US-BRISTOL-MYERS SQUIBB COMPANY-13856968

PATIENT
  Age: 51 Year
  Sex: Male
  Weight: 94 kg

DRUGS (5)
  1. ERBITUX [Suspect]
     Indication: HEAD AND NECK CANCER
     Dosage: CETUXIMAB400MG/M2 INITIAL250MG/M2 1-7
     Dates: start: 20070611, end: 20070709
  2. CISPLATIN [Suspect]
     Indication: HEAD AND NECK CANCER
     Dosage: CISPLATIN100MG/M2 ON DAY1+22
     Dates: start: 20070611, end: 20070709
  3. RADIATION THERAPY [Suspect]
     Indication: HEAD AND NECK CANCER
     Dosage: 1 DOSAGE FORM = 4800 CGY. NUMBER OF FRACTIONS: 24. NUMBER OF ELASPSED DAYS: 2.
     Dates: start: 20070618, end: 20070718
  4. FENTANYL-75 [Concomitant]
  5. STEROIDS [Concomitant]

REACTIONS (9)
  - DIZZINESS [None]
  - HAEMOLYTIC ANAEMIA [None]
  - HYPERGLYCAEMIA [None]
  - HYPOKALAEMIA [None]
  - HYPOMAGNESAEMIA [None]
  - INFECTION [None]
  - LEUKOPENIA [None]
  - MUCOSAL INFLAMMATION [None]
  - RASH [None]
